FAERS Safety Report 16260549 (Version 1)
Quarter: 2019Q2

REPORT INFORMATION
  Report Type: Spontaneous
  Country: ES (occurrence: ES)
  Receive Date: 20190501
  Receipt Date: 20190501
  Transmission Date: 20190711
  Serious: Yes (Hospitalization)
  Sender: FDA-Public Use
  Company Number: ES-MYLANLABS-2019M1040867

PATIENT
  Age: 86 Year
  Sex: Female

DRUGS (4)
  1. DOGMATIL [Interacting]
     Active Substance: SULPIRIDE
     Indication: VERTIGO
     Dosage: 50 MILLIGRAM
     Route: 048
     Dates: start: 20171221, end: 20171223
  2. VALSARTAN. [Suspect]
     Active Substance: VALSARTAN
     Indication: PRODUCT USED FOR UNKNOWN INDICATION
     Dosage: 320 MILLIGRAM
     Route: 048
     Dates: start: 20160321, end: 20171224
  3. FUROSEMIDE. [Interacting]
     Active Substance: FUROSEMIDE
     Indication: PRODUCT USED FOR UNKNOWN INDICATION
     Dosage: 80 MILLIGRAM
     Route: 048
     Dates: start: 20170907, end: 20171224
  4. ALDACTONE [Interacting]
     Active Substance: SPIRONOLACTONE
     Indication: PRODUCT USED FOR UNKNOWN INDICATION
     Dosage: 100 MILLIGRAM
     Route: 048
     Dates: start: 20171013, end: 20171224

REACTIONS (3)
  - Hyperkalaemia [Recovered/Resolved]
  - Drug interaction [Unknown]
  - Hepatic encephalopathy [Recovered/Resolved]

NARRATIVE: CASE EVENT DATE: 20171224
